FAERS Safety Report 20181003 (Version 1)
Quarter: 2021Q4

REPORT INFORMATION
  Report Type: Spontaneous
  Country: US (occurrence: US)
  Receive Date: 20211214
  Receipt Date: 20211214
  Transmission Date: 20220303
  Serious: Yes (Death, Other)
  Sender: FDA-Public Use
  Company Number: US-JNJCH-2008000962

PATIENT
  Age: 26 Year
  Sex: Male

DRUGS (7)
  1. IBUPROFEN [Suspect]
     Active Substance: IBUPROFEN
     Indication: Suicide attempt
     Dosage: UNK
     Route: 048
     Dates: start: 2006, end: 2006
  2. ALPRAZOLAM [Suspect]
     Active Substance: ALPRAZOLAM
     Indication: Suicide attempt
     Dosage: UNK
     Route: 048
     Dates: start: 2006, end: 2006
  3. ZOLPIDEM [Suspect]
     Active Substance: ZOLPIDEM TARTRATE
     Indication: Suicide attempt
     Dosage: UNK
     Route: 048
     Dates: start: 2006, end: 2006
  4. LAMOTRIGINE [Suspect]
     Active Substance: LAMOTRIGINE
     Indication: Suicide attempt
     Dosage: UNK
     Route: 048
     Dates: start: 2006, end: 2006
  5. ESCITALOPRAM [Suspect]
     Active Substance: ESCITALOPRAM OXALATE
     Indication: Suicide attempt
     Dosage: UNK
     Route: 048
     Dates: start: 2006, end: 2006
  6. RAMELTEON [Suspect]
     Active Substance: RAMELTEON
     Indication: Suicide attempt
     Dosage: UNK
     Route: 048
     Dates: start: 2006, end: 2006
  7. ZALEPLON [Suspect]
     Active Substance: ZALEPLON
     Indication: Suicide attempt
     Dosage: UNK
     Route: 048
     Dates: start: 2006, end: 2006

REACTIONS (3)
  - Toxicity to various agents [Fatal]
  - Completed suicide [Fatal]
  - Intentional overdose [Fatal]

NARRATIVE: CASE EVENT DATE: 20060101
